FAERS Safety Report 9820845 (Version 2)
Quarter: 2014Q2

REPORT INFORMATION
  Report Type: Report from Study
  Country: JP (occurrence: JP)
  Receive Date: 20140116
  Receipt Date: 20140617
  Transmission Date: 20141212
  Serious: Yes (Hospitalization)
  Sender: FDA-Public Use
  Company Number: PHHY2014JP002803

PATIENT
  Age: 36 Year
  Sex: Male

DRUGS (57)
  1. LEPONEX / CLOZARIL [Suspect]
     Indication: SCHIZOPHRENIA, PARANOID TYPE
     Dosage: 12.5 MG, UNK
     Route: 048
     Dates: start: 20120118, end: 20120118
  2. LEPONEX / CLOZARIL [Suspect]
     Dosage: 25 MG, UNK
     Route: 048
     Dates: start: 20120119, end: 20120121
  3. LEPONEX / CLOZARIL [Suspect]
     Dosage: 50 MG, UNK
     Route: 048
     Dates: start: 20120122, end: 20120124
  4. LEPONEX / CLOZARIL [Suspect]
     Dosage: 75 MG, UNK
     Route: 048
     Dates: start: 20120125, end: 20120126
  5. LEPONEX / CLOZARIL [Suspect]
     Dosage: 100 MG, UNK
     Route: 048
     Dates: start: 20120127, end: 20120128
  6. LEPONEX / CLOZARIL [Suspect]
     Dosage: 125 MG, UNK
     Route: 048
     Dates: start: 20120129, end: 20120131
  7. LEPONEX / CLOZARIL [Suspect]
     Dosage: 150 MG, UNK
     Route: 048
     Dates: start: 20120201, end: 20120203
  8. LEPONEX / CLOZARIL [Suspect]
     Dosage: 175 MG, UNK
     Route: 048
     Dates: start: 20120204, end: 20120206
  9. LEPONEX / CLOZARIL [Suspect]
     Dosage: 200 MG, UNK
     Route: 048
     Dates: start: 20120207, end: 20120210
  10. LEPONEX / CLOZARIL [Suspect]
     Dosage: 250 MG, UNK
     Route: 048
     Dates: start: 20120211, end: 20120214
  11. LEPONEX / CLOZARIL [Suspect]
     Dosage: 300 MG, UNK
     Route: 048
     Dates: start: 20120215, end: 20120218
  12. LEPONEX / CLOZARIL [Suspect]
     Dosage: 350 MG, UNK
     Route: 048
     Dates: start: 20120219
  13. LEPONEX / CLOZARIL [Suspect]
     Dosage: 450 MG, UNK
     Route: 048
     Dates: start: 20120719, end: 20120731
  14. LEPONEX / CLOZARIL [Suspect]
     Dosage: 500 MG, UNK
     Route: 048
     Dates: start: 20120801, end: 20120918
  15. LEPONEX / CLOZARIL [Suspect]
     Dosage: 300 MG, UNK
     Route: 048
     Dates: start: 20120920, end: 20121003
  16. LEPONEX / CLOZARIL [Suspect]
     Dosage: 325 MG, UNK
     Route: 048
     Dates: start: 20121004, end: 20121010
  17. LEPONEX / CLOZARIL [Suspect]
     Dosage: 350 MG, UNK
     Route: 048
     Dates: start: 20121011, end: 20121107
  18. LEPONEX / CLOZARIL [Suspect]
     Dosage: 375 MG, UNK
     Route: 048
     Dates: start: 20121108, end: 20121114
  19. LEPONEX / CLOZARIL [Suspect]
     Dosage: 400 MG, UNK
     Route: 048
     Dates: start: 20121115, end: 20121121
  20. LEPONEX / CLOZARIL [Suspect]
     Dosage: 425 MG, UNK
     Route: 048
     Dates: start: 20121122, end: 20121128
  21. LEPONEX / CLOZARIL [Suspect]
     Dosage: 450 MG, UNK
     Route: 048
     Dates: start: 20121129, end: 20121205
  22. LEPONEX / CLOZARIL [Suspect]
     Dosage: 475 MG, UNK
     Route: 048
     Dates: start: 20121206, end: 20121212
  23. LEPONEX / CLOZARIL [Suspect]
     Dosage: 500 MG, UNK
     Route: 048
     Dates: start: 20121213, end: 20121219
  24. LEPONEX / CLOZARIL [Suspect]
     Dosage: 525 MG, UNK
     Route: 048
     Dates: start: 20121220, end: 20130102
  25. LEPONEX / CLOZARIL [Suspect]
     Dosage: 550 MG, UNK
     Route: 048
     Dates: start: 20130103
  26. AKINETON//BIPERIDEN HYDROCHLORIDE [Suspect]
     Dosage: UNK
  27. LAMICTAL [Suspect]
     Dosage: UNK
     Route: 048
  28. MAGNESIUM OXIDE [Suspect]
     Indication: CONSTIPATION
     Dosage: 660 MG, DAILY
     Route: 048
     Dates: start: 20120719
  29. DEPAKENE-R [Suspect]
     Dosage: UNK
     Route: 048
  30. GANATON [Suspect]
     Dosage: UNK
     Route: 048
  31. RISPERIDONE [Concomitant]
     Dosage: 11.5 MG, UNK
     Route: 048
     Dates: start: 20120118
  32. RISPERIDONE [Concomitant]
     Dosage: 11 MG, UNK
     Route: 048
  33. RISPERIDONE [Concomitant]
     Dosage: 10.5 MG, UNK
     Route: 048
  34. RISPERIDONE [Concomitant]
     Dosage: 10 MG, UNK
     Route: 048
  35. RISPERIDONE [Concomitant]
     Dosage: 9.5 MG, UNK
     Route: 048
  36. RISPERIDONE [Concomitant]
     Dosage: 9 MG, UNK
     Route: 048
  37. RISPERIDONE [Concomitant]
     Dosage: 8.5 MG, UNK
     Route: 048
  38. RISPERIDONE [Concomitant]
     Dosage: 7.5 MG, UNK
     Route: 048
  39. RISPERIDONE [Concomitant]
     Dosage: 6.5 MG, UNK
     Route: 048
  40. RISPERIDONE [Concomitant]
     Dosage: 5.5 MG, UNK
     Route: 048
  41. RISPERIDONE [Concomitant]
     Dosage: 4.5 MG, UNK
     Route: 048
  42. RISPERIDONE [Concomitant]
     Dosage: 3.5 MG, UNK
     Route: 048
  43. RISPERIDONE [Concomitant]
     Dosage: 2.5 MG, UNK
     Route: 048
  44. RISPERIDONE [Concomitant]
     Dosage: 1.5 MG, UNK
     Route: 048
     Dates: end: 20120214
  45. BIPERIDEN HYDROCHLORIDE [Concomitant]
     Indication: EXTRAPYRAMIDAL DISORDER
     Dosage: 4 MG, UNK
     Route: 048
     Dates: start: 20120118
  46. BIPERIDEN HYDROCHLORIDE [Concomitant]
     Dosage: 3 MG, UNK
     Route: 048
  47. LAMOTRIGINE [Concomitant]
     Dosage: 100 MG, UNK
     Route: 048
     Dates: start: 20120118
  48. LAMOTRIGINE [Concomitant]
     Dosage: 150 MG, UNK
     Route: 048
  49. LAMOTRIGINE [Concomitant]
     Dosage: 100 MG, UNK
     Route: 048
  50. BROTIZOLAM [Concomitant]
     Indication: SCHIZOPHRENIA, PARANOID TYPE
     Dosage: 0.25 MG, UNK
     Route: 048
     Dates: start: 20120118, end: 20120320
  51. FLUNITRAZEPAM [Concomitant]
     Indication: SCHIZOPHRENIA, PARANOID TYPE
     Dosage: 2 MG, UNK
     Route: 048
     Dates: start: 20120118
  52. FLUNITRAZEPAM [Concomitant]
     Dosage: 1 MG, UNK
     Route: 048
     Dates: end: 20120313
  53. CLONAZEPAM [Concomitant]
     Indication: SCHIZOPHRENIA, PARANOID TYPE
     Dosage: 2.5 MG, UNK
     Route: 048
     Dates: start: 20120118
  54. CLONAZEPAM [Concomitant]
     Dosage: 2.0 MG, UNK
     Route: 048
  55. CLONAZEPAM [Concomitant]
     Dosage: 1.5 MG, UNK
     Route: 048
  56. CLONAZEPAM [Concomitant]
     Dosage: 1.0 MG, UNK
     Route: 048
  57. SODIUM VALPROATE [Concomitant]
     Dosage: 1000 MG, UNK
     Route: 048
     Dates: start: 20120719

REACTIONS (2)
  - Appendicitis [Recovered/Resolved]
  - Abdominal distension [Not Recovered/Not Resolved]
